FAERS Safety Report 10211650 (Version 1)
Quarter: 2014Q2

REPORT INFORMATION
  Report Type: Spontaneous
  Country: US (occurrence: US)
  Receive Date: 20140602
  Receipt Date: 20140602
  Transmission Date: 20141212
  Serious: No
  Sender: FDA-Public Use
  Company Number: US-GLAXOSMITHKLINE-A1069771A

PATIENT
  Sex: Male

DRUGS (2)
  1. FABIOR [Suspect]
     Indication: ACNE
     Route: 061
  2. UNKNOWN [Concomitant]

REACTIONS (1)
  - Burns second degree [Unknown]
